FAERS Safety Report 10804975 (Version 1)
Quarter: 2015Q1

REPORT INFORMATION
  Report Type: Report from Study
  Country: US (occurrence: US)
  Receive Date: 20150217
  Receipt Date: 20150217
  Transmission Date: 20150721
  Serious: No
  Sender: FDA-Public Use
  Company Number: US-ABBVIE-14K-163-1245910-00

PATIENT
  Age: 59 Year
  Sex: Female

DRUGS (16)
  1. RIFAMPIN. [Suspect]
     Active Substance: RIFAMPIN
     Dosage: 150 MG IN AM AND 300 MG IN PM
  2. NSAID^S [Suspect]
     Active Substance: UNSPECIFIED INGREDIENT
     Indication: PRODUCT USED FOR UNKNOWN INDICATION
  3. TIROSINT [Concomitant]
     Active Substance: LEVOTHYROXINE SODIUM
     Indication: HYPOTHYROIDISM
  4. ONCOPLEX [Concomitant]
     Indication: SUPPLEMENTATION THERAPY
     Dosage: SUPPLEMENT
  5. ASPIRIN. [Concomitant]
     Active Substance: ASPIRIN
     Indication: PRODUCT USED FOR UNKNOWN INDICATION
  6. RIFAMPIN. [Suspect]
     Active Substance: RIFAMPIN
     Dates: start: 20140605
  7. PLAQUENIL [Concomitant]
     Active Substance: HYDROXYCHLOROQUINE SULFATE
     Indication: PSORIATIC ARTHROPATHY
  8. CLINDAMYCIN [Concomitant]
     Active Substance: CLINDAMYCIN\CLINDAMYCIN PHOSPHATE
     Indication: PRODUCT USED FOR UNKNOWN INDICATION
     Route: 048
  9. HUMIRA [Suspect]
     Active Substance: ADALIMUMAB
     Indication: PSORIATIC ARTHROPATHY
     Dates: start: 20140516
  10. DOXEPIN [Concomitant]
     Active Substance: DOXEPIN
     Indication: FIBROMYALGIA
     Dosage: 12 HOURS BEFORE SHE WANTS TO WAKE UP
  11. FISH OIL [Concomitant]
     Active Substance: FISH OIL
     Indication: PRODUCT USED FOR UNKNOWN INDICATION
     Dosage: SUPPLEMENT
  12. RIFAMPIN. [Suspect]
     Active Substance: RIFAMPIN
     Indication: CAT SCRATCH DISEASE
     Route: 048
     Dates: start: 20140523
  13. EXCEDRIN [Concomitant]
     Active Substance: ACETAMINOPHEN\ASPIRIN\CAFFEINE
     Indication: ARTHRALGIA
     Dosage: 1 TO 2 CAPLETS, 2 TO 4 TIMES PER DAY
     Route: 048
  14. DOXEPIN [Concomitant]
     Active Substance: DOXEPIN
     Indication: INSOMNIA
  15. DIM [Concomitant]
     Indication: SUPPLEMENTATION THERAPY
     Dosage: SUPPLEMENT
  16. HUMIRA [Suspect]
     Active Substance: ADALIMUMAB
     Indication: CAT SCRATCH DISEASE

REACTIONS (8)
  - Fatigue [Unknown]
  - Drug ineffective [Not Recovered/Not Resolved]
  - Peripheral swelling [Not Recovered/Not Resolved]
  - Rash [Unknown]
  - Arthralgia [Recovering/Resolving]
  - Erythema [Not Recovered/Not Resolved]
  - Headache [Unknown]
  - Injection site bruising [Not Recovered/Not Resolved]

NARRATIVE: CASE EVENT DATE: 201405
